FAERS Safety Report 7357314-5 (Version None)
Quarter: 2011Q1

REPORT INFORMATION
  Report Type: 
  Country: None (occurrence: None)
  Receive Date: 20110307
  Receipt Date: 20110224
  Transmission Date: 20110831
  Serious: Yes (Hospitalization)
  Sender: FDA-Public Use
  Company Number: 841279

PATIENT
  Age: 8 Year
  Sex: Male

DRUGS (6)
  1. ETOPOSIDE [Suspect]
     Indication: RHABDOMYOSARCOMA
     Dates: end: 20051201
  2. CARBOPLATIN [Suspect]
     Indication: RHABDOMYOSARCOMA
     Dates: end: 20051201
  3. IFOSFAMIDE [Suspect]
     Indication: RHABDOMYOSARCOMA
     Dates: end: 20051201
  4. (THERAPEUTIC RADIOPHARMACEUTICALS) [Suspect]
     Indication: RHABDOMYOSARCOMA
     Dosage: SEE IMAGE
     Dates: end: 20050401
  5. (THERAPEUTIC RADIOPHARMACEUTICALS) [Suspect]
     Indication: RHABDOMYOSARCOMA
     Dosage: SEE IMAGE
     Dates: end: 20050401
  6. (THERAPEUTIC RADIOPHARMACEUTICALS) [Suspect]
     Indication: RHABDOMYOSARCOMA
     Dosage: SEE IMAGE
     Dates: end: 20050401

REACTIONS (1)
  - BONE SARCOMA [None]
